FAERS Safety Report 20429382 (Version 1)
Quarter: 2022Q1

REPORT INFORMATION
  Report Type: Spontaneous
  Country: CN (occurrence: None)
  Receive Date: 20220204
  Receipt Date: 20220204
  Transmission Date: 20220423
  Serious: Yes (Hospitalization, Other)
  Sender: FDA-Public Use
  Company Number: 2022A049913

PATIENT
  Age: 15960 Day
  Sex: Female
  Weight: 55 kg

DRUGS (2)
  1. DAPAGLIFLOZIN [Suspect]
     Active Substance: DAPAGLIFLOZIN
     Indication: Blood glucose decreased
     Route: 048
     Dates: start: 20211015, end: 20220106
  2. ACARBOSE [Concomitant]
     Active Substance: ACARBOSE
     Indication: Blood glucose decreased
     Route: 048
     Dates: start: 20211015, end: 20220106

REACTIONS (5)
  - Ketoacidosis [Recovering/Resolving]
  - Abdominal distension [Unknown]
  - Diarrhoea [Unknown]
  - Anal incontinence [Unknown]
  - Urinary incontinence [Unknown]

NARRATIVE: CASE EVENT DATE: 20220106
